FAERS Safety Report 18971513 (Version 3)
Quarter: 2021Q2

REPORT INFORMATION
  Report Type: Other
  Country: US (occurrence: US)
  Receive Date: 20210305
  Receipt Date: 20210423
  Transmission Date: 20210717
  Serious: Yes (Hospitalization, Other)
  Sender: FDA-Public Use
  Company Number: US-ROCHE-2775924

PATIENT
  Sex: Female
  Weight: 120.31 kg

DRUGS (16)
  1. BENADRYL [Suspect]
     Active Substance: DIPHENHYDRAMINE HYDROCHLORIDE
     Indication: PREMEDICATION
     Route: 042
  2. GABAPENTIN. [Suspect]
     Active Substance: GABAPENTIN
     Indication: GUILLAIN-BARRE SYNDROME
     Route: 048
  3. LEVOTHYROXINE. [Concomitant]
     Active Substance: LEVOTHYROXINE
     Indication: HYPOTHYROIDISM
     Route: 048
  4. ALLEGRA [Concomitant]
     Active Substance: FEXOFENADINE HYDROCHLORIDE
     Indication: HYPERSENSITIVITY
     Route: 048
  5. SOLU?MEDROL [Concomitant]
     Active Substance: METHYLPREDNISOLONE SODIUM SUCCINATE
     Route: 042
  6. CELLCEPT [Suspect]
     Active Substance: MYCOPHENOLATE MOFETIL\MYCOPHENOLATE MOFETIL HYDROCHLORIDE
     Indication: CHRONIC INFLAMMATORY DEMYELINATING POLYRADICULONEUROPATHY
     Dosage: 5 QD
     Route: 048
  7. PREMARIN [Concomitant]
     Active Substance: ESTROGENS, CONJUGATED
     Route: 048
  8. AMLODIPINE [Suspect]
     Active Substance: AMLODIPINE BESYLATE
     Indication: HYPERTENSION
     Dosage: TAKE AT NIGHT AROUND 7 PM
     Route: 048
  9. BABY ASPIRIN [Concomitant]
     Active Substance: ASPIRIN
  10. SYNTHROID [Concomitant]
     Active Substance: LEVOTHYROXINE SODIUM
     Indication: HYPOTHYROIDISM
     Route: 048
  11. LOSARTAN. [Concomitant]
     Active Substance: LOSARTAN
     Indication: HYPERTENSION
     Dosage: ONE EVERY MORNING
     Route: 048
  12. CELLCEPT [Suspect]
     Active Substance: MYCOPHENOLATE MOFETIL\MYCOPHENOLATE MOFETIL HYDROCHLORIDE
     Dosage: 3 TABLETS OF 500 MG AT NIGHT (1500 MG)
     Route: 048
  13. CELLCEPT [Suspect]
     Active Substance: MYCOPHENOLATE MOFETIL\MYCOPHENOLATE MOFETIL HYDROCHLORIDE
     Indication: CHRONIC INFLAMMATORY DEMYELINATING POLYRADICULONEUROPATHY
     Dosage: 2 TABLETS OF 500 MG IN AFTERNOON (1000 MG)
     Route: 048
  14. GABAPENTIN. [Suspect]
     Active Substance: GABAPENTIN
     Route: 048
  15. AMLODIPINE [Suspect]
     Active Substance: AMLODIPINE BESYLATE
     Dosage: TAKE AT NIGHT AROUND 7 PM
     Route: 048
     Dates: start: 2020
  16. INSULIN [Suspect]
     Active Substance: INSULIN NOS
     Indication: PRODUCT USED FOR UNKNOWN INDICATION
     Route: 065
     Dates: start: 2020, end: 2020

REACTIONS (13)
  - Localised infection [Recovered/Resolved]
  - Corneal thickening [Not Recovered/Not Resolved]
  - Staphylococcal infection [Unknown]
  - Type 2 diabetes mellitus [Unknown]
  - Glycosylated haemoglobin increased [Recovering/Resolving]
  - Blood glucose decreased [Unknown]
  - Glaucoma [Not Recovered/Not Resolved]
  - Off label use [Unknown]
  - Cataract [Unknown]
  - Muscle spasms [Recovering/Resolving]
  - Illness [Unknown]
  - Hypotension [Recovering/Resolving]
  - Pain [Recovering/Resolving]

NARRATIVE: CASE EVENT DATE: 2020
